FAERS Safety Report 9016096 (Version 2)
Quarter: 2013Q1

REPORT INFORMATION
  Report Type: Spontaneous
  Country: US (occurrence: US)
  Receive Date: 20130116
  Receipt Date: 20130118
  Transmission Date: 20140127
  Serious: Yes (Death, Hospitalization, Other)
  Sender: FDA-Public Use
  Company Number: PHHY2013US003895

PATIENT
  Age: 61 Year
  Sex: Female

DRUGS (2)
  1. HEPARIN [Suspect]
     Indication: HERNIA REPAIR
     Dosage: 5000 U/ML, UNK
     Route: 058
  2. HEPARIN [Suspect]
     Indication: GASTRECTOMY

REACTIONS (15)
  - Pulmonary embolism [Fatal]
  - Back pain [Unknown]
  - Abdominal pain [Unknown]
  - Hepatic infarction [Unknown]
  - Pancreatitis [Unknown]
  - Angiopathy [Unknown]
  - Hypotension [Unknown]
  - Splenic rupture [Unknown]
  - Renal infarct [Unknown]
  - Haemoglobin decreased [Unknown]
  - Heparin-induced thrombocytopenia [Unknown]
  - Platelet count decreased [Unknown]
  - Embolism [Unknown]
  - Hypovolaemia [Unknown]
  - Peritoneal haemorrhage [Unknown]
